FAERS Safety Report 17724997 (Version 3)
Quarter: 2021Q3

REPORT INFORMATION
  Report Type: Spontaneous
  Country: US (occurrence: US)
  Receive Date: 20200429
  Receipt Date: 20210805
  Transmission Date: 20211014
  Serious: Yes (Hospitalization, Other)
  Sender: FDA-Public Use
  Company Number: US-TEVA-2020-US-1228671

PATIENT
  Age: 46 Year
  Sex: Female

DRUGS (12)
  1. VALSARTAN /HYDROCHLOROTHIAZIDE?LUPIN [Suspect]
     Active Substance: HYDROCHLOROTHIAZIDE\VALSARTAN
     Indication: HYPERTENSION
     Dosage: 160/25 MG
     Route: 048
     Dates: start: 20130429, end: 20130702
  2. VALSARTAN W/HYDROCHLOROTHIAZIDE?ACTAVIS [Suspect]
     Active Substance: HYDROCHLOROTHIAZIDE\VALSARTAN
     Dosage: 160 /12.5 MG
     Route: 048
     Dates: start: 20161027, end: 20180117
  3. VALSARTAN /HYDROCHLOROTHIAZIDE?SANDOZ [Suspect]
     Active Substance: HYDROCHLOROTHIAZIDE\VALSARTAN
     Indication: HYPERTENSION
     Dosage: 160/25 MG
     Route: 048
     Dates: start: 20121013, end: 20130404
  4. ATORVASTATIN [Concomitant]
     Active Substance: ATORVASTATIN
     Indication: BLOOD CHOLESTEROL INCREASED
     Route: 065
     Dates: start: 20161111
  5. ZOLOFT [Concomitant]
     Active Substance: SERTRALINE HYDROCHLORIDE
     Route: 048
     Dates: start: 2018
  6. NORTRIPTYLINE [Concomitant]
     Active Substance: NORTRIPTYLINE
     Indication: HEADACHE
     Route: 065
     Dates: start: 20180306
  7. VALSARTAN W/HYDROCHLOROTHIAZIDE?ACTAVIS [Suspect]
     Active Substance: HYDROCHLOROTHIAZIDE\VALSARTAN
     Dosage: 160 /12.5 MG
     Route: 048
     Dates: start: 20160614
  8. VALSARTAN /HYDROCHLOROTHIAZIDE?ALEMBIC [Suspect]
     Active Substance: HYDROCHLOROTHIAZIDE\VALSARTAN
     Indication: HYPERTENSION
     Dosage: 160/ 12.5 MG
     Route: 048
     Dates: start: 20180207, end: 20180712
  9. ZOLOFT [Concomitant]
     Active Substance: SERTRALINE HYDROCHLORIDE
     Indication: DEPRESSION
     Route: 048
     Dates: start: 20111103
  10. VALSARTAN W/HYDROCHLOROTHIAZIDE?ACTAVIS [Suspect]
     Active Substance: HYDROCHLOROTHIAZIDE\VALSARTAN
     Indication: HYPERTENSION
     Dosage: 160/25 MG
     Route: 048
     Dates: start: 20130807, end: 20140426
  11. VALSARTAN /HYDROCHLOROTHIAZIDE?QUALITEST [Suspect]
     Active Substance: HYDROCHLOROTHIAZIDE\VALSARTAN
     Indication: HYPERTENSION
     Dosage: 160/25 MG
     Route: 048
     Dates: start: 20140514, end: 20160524
  12. NORTRIPTYLINE [Concomitant]
     Active Substance: NORTRIPTYLINE
     Indication: SLEEP DISORDER
     Route: 065
     Dates: start: 20180129, end: 20180306

REACTIONS (1)
  - Renal cell carcinoma stage II [Unknown]
